FAERS Safety Report 17429080 (Version 1)
Quarter: 2020Q1

REPORT INFORMATION
  Report Type: Spontaneous
  Country: AU (occurrence: AU)
  Receive Date: 20200218
  Receipt Date: 20200218
  Transmission Date: 20200409
  Serious: Yes (Other)
  Sender: FDA-Public Use
  Company Number: AU-CURIUM-201400196

PATIENT
  Age: 44 Year
  Sex: Male

DRUGS (2)
  1. ANSTO GENERATOR [Concomitant]
     Indication: BONE SCAN
     Route: 042
     Dates: start: 20140211, end: 20140211
  2. TECHNESCAN HDP [Suspect]
     Active Substance: TECHNETIUM TC-99M OXIDRONATE
     Indication: BONE SCAN
     Route: 042
     Dates: start: 20140211, end: 20140211

REACTIONS (1)
  - Meniere^s disease [Not Recovered/Not Resolved]

NARRATIVE: CASE EVENT DATE: 20140212
